FAERS Safety Report 14227443 (Version 1)
Quarter: 2017Q4

REPORT INFORMATION
  Report Type: Report from Study
  Country: JP (occurrence: JP)
  Receive Date: 20171127
  Receipt Date: 20171127
  Transmission Date: 20180321
  Serious: Yes (Death)
  Sender: FDA-Public Use
  Company Number: JP-PFIZER INC-2017502045

PATIENT

DRUGS (8)
  1. CISPLATIN. [Suspect]
     Active Substance: CISPLATIN
     Dosage: CYCLIC (CCRT)
  2. CARBOPLATIN. [Suspect]
     Active Substance: CARBOPLATIN
     Indication: NASOPHARYNGEAL CANCER
     Dosage: AUC 2.0 ON DAYS 1, 8, 15, 22, 29, 36, AND 42 (WEEKLY)
  3. APREPITANT. [Concomitant]
     Active Substance: APREPITANT
     Indication: ANTIEMETIC SUPPORTIVE CARE
     Dosage: UNK
  4. DEXAMETHASONE. [Concomitant]
     Active Substance: DEXAMETHASONE
     Indication: ANTIEMETIC SUPPORTIVE CARE
  5. FLUOROURACIL. [Suspect]
     Active Substance: FLUOROURACIL
     Indication: NASOPHARYNGEAL CANCER
     Dosage: 750-800 MG/M2/DAY, CONTINUOUS INFUSION FOR 5 DAYS, EVERY 3 WEEKS
     Route: 041
  6. DEXAMETHASONE. [Concomitant]
     Active Substance: DEXAMETHASONE
     Indication: PROPHYLAXIS
     Dosage: UNK
  7. DOCETAXEL. [Suspect]
     Active Substance: DOCETAXEL
     Indication: NASOPHARYNGEAL CANCER
     Dosage: 60-70 MG/M2, ON DAY 1 EVERY 3 WEEKS
  8. CISPLATIN. [Suspect]
     Active Substance: CISPLATIN
     Indication: NASOPHARYNGEAL CANCER
     Dosage: 60-70 MG/M2-ON DAY 1 EVERY 3 WEEKS

REACTIONS (1)
  - Necrosis [Fatal]
